FAERS Safety Report 9279583 (Version 59)
Quarter: 2019Q2

REPORT INFORMATION
  Report Type: Report from Study
  Country: CA (occurrence: CA)
  Receive Date: 20130509
  Receipt Date: 20190625
  Transmission Date: 20190711
  Serious: Yes (Other)
  Sender: FDA-Public Use
  Company Number: CA-ROCHE-1132729

PATIENT
  Age: 54 Year
  Sex: Female
  Weight: 84.5 kg

DRUGS (15)
  1. ACTEMRA [Suspect]
     Active Substance: TOCILIZUMAB
     Route: 042
     Dates: start: 20110517
  2. ACTEMRA [Suspect]
     Active Substance: TOCILIZUMAB
     Route: 042
     Dates: start: 20110222
  3. ACTEMRA [Suspect]
     Active Substance: TOCILIZUMAB
     Indication: RHEUMATOID ARTHRITIS
     Route: 042
     Dates: start: 20110224
  4. ACTEMRA [Suspect]
     Active Substance: TOCILIZUMAB
     Route: 042
     Dates: start: 20110112
  5. ACTEMRA [Suspect]
     Active Substance: TOCILIZUMAB
     Route: 042
     Dates: start: 20110324
  6. ACTEMRA [Suspect]
     Active Substance: TOCILIZUMAB
     Route: 042
     Dates: start: 20110323
  7. ARTHROTEC [Concomitant]
     Active Substance: DICLOFENAC SODIUM\MISOPROSTOL
  8. ACTEMRA [Suspect]
     Active Substance: TOCILIZUMAB
     Route: 042
     Dates: start: 20110614
  9. ACTEMRA [Suspect]
     Active Substance: TOCILIZUMAB
     Route: 042
     Dates: start: 20130904
  10. ACTEMRA [Suspect]
     Active Substance: TOCILIZUMAB
     Route: 042
     Dates: start: 20170905
  11. METHOTREXATE. [Concomitant]
     Active Substance: METHOTREXATE
  12. ACTEMRA [Suspect]
     Active Substance: TOCILIZUMAB
     Route: 042
     Dates: start: 20110224
  13. ACTEMRA [Suspect]
     Active Substance: TOCILIZUMAB
     Route: 042
     Dates: start: 20110603
  14. ACTEMRA [Suspect]
     Active Substance: TOCILIZUMAB
     Route: 042
     Dates: start: 20160906
  15. FOLIC ACID. [Concomitant]
     Active Substance: FOLIC ACID

REACTIONS (59)
  - Limb injury [Not Recovered/Not Resolved]
  - Nasopharyngitis [Not Recovered/Not Resolved]
  - Oropharyngeal pain [Not Recovered/Not Resolved]
  - Asthenopia [Unknown]
  - Gastroenteritis viral [Unknown]
  - Dysphonia [Not Recovered/Not Resolved]
  - Osteoarthritis [Not Recovered/Not Resolved]
  - Umbilical hernia [Unknown]
  - Infusion related reaction [Recovering/Resolving]
  - Bronchitis [Recovering/Resolving]
  - Stomatitis [Recovering/Resolving]
  - Migraine [Unknown]
  - Fall [Unknown]
  - Nausea [Not Recovered/Not Resolved]
  - Tinnitus [Not Recovered/Not Resolved]
  - Asthma [Not Recovered/Not Resolved]
  - Nausea [Unknown]
  - Headache [Not Recovered/Not Resolved]
  - Insomnia [Not Recovered/Not Resolved]
  - Disability assessment scale score increased [Unknown]
  - Accident [Recovered/Resolved]
  - Rash [Not Recovered/Not Resolved]
  - Musculoskeletal stiffness [Not Recovered/Not Resolved]
  - Blood pressure systolic increased [Unknown]
  - Pain [Not Recovered/Not Resolved]
  - Dyspnoea [Not Recovered/Not Resolved]
  - Restlessness [Not Recovered/Not Resolved]
  - Hyperhidrosis [Not Recovered/Not Resolved]
  - Tongue injury [Recovering/Resolving]
  - Autoimmune thyroiditis [Not Recovered/Not Resolved]
  - Arthralgia [Not Recovered/Not Resolved]
  - Blood pressure increased [Recovering/Resolving]
  - Dysphagia [Not Recovered/Not Resolved]
  - Weight increased [Unknown]
  - Gait disturbance [Not Recovered/Not Resolved]
  - Mobility decreased [Not Recovered/Not Resolved]
  - Fatigue [Unknown]
  - Nasal congestion [Recovering/Resolving]
  - Feeling hot [Not Recovered/Not Resolved]
  - Lip injury [Recovering/Resolving]
  - Dental caries [Recovered/Resolved]
  - Thyroid disorder [Unknown]
  - Vertigo [Unknown]
  - Rheumatoid arthritis [Not Recovered/Not Resolved]
  - Eczema [Not Recovered/Not Resolved]
  - Lower respiratory tract congestion [Not Recovered/Not Resolved]
  - Lower respiratory tract infection [Recovering/Resolving]
  - Dizziness [Unknown]
  - Haematochezia [Unknown]
  - Oxygen saturation decreased [Unknown]
  - Nasopharyngitis [Recovered/Resolved]
  - Vision blurred [Unknown]
  - Paraesthesia [Unknown]
  - Chest pain [Not Recovered/Not Resolved]
  - Feeling cold [Not Recovered/Not Resolved]
  - Cough [Not Recovered/Not Resolved]
  - Sinus congestion [Not Recovered/Not Resolved]
  - Breath sounds abnormal [Unknown]
  - Influenza [Recovering/Resolving]

NARRATIVE: CASE EVENT DATE: 2012
